FAERS Safety Report 8834639 (Version 1)
Quarter: 2012Q4

REPORT INFORMATION
  Report Type: Report from Study
  Country: US (occurrence: US)
  Receive Date: 20121010
  Receipt Date: 20121010
  Transmission Date: 20130627
  Serious: Yes (Other)
  Sender: FDA-Public Use
  Company Number: US-JNJFOC-20121004934

PATIENT
  Age: 46 Year
  Sex: Female
  Weight: 85.28 kg

DRUGS (2)
  1. SIMPONI [Suspect]
     Indication: PSORIASIS
     Route: 058
     Dates: start: 2010
  2. SIMPONI [Suspect]
     Indication: PSORIATIC ARTHROPATHY
     Route: 058
     Dates: start: 2010

REACTIONS (3)
  - Pain [Not Recovered/Not Resolved]
  - Psoriasis [Not Recovered/Not Resolved]
  - Drug dose omission [Unknown]
